FAERS Safety Report 23398178 (Version 1)
Quarter: 2024Q1

REPORT INFORMATION
  Report Type: Report from Study
  Country: US (occurrence: None)
  Receive Date: 20240112
  Receipt Date: 20240112
  Transmission Date: 20240410
  Serious: Yes (Other)
  Sender: FDA-Public Use
  Company Number: 2024A005308

PATIENT
  Age: 65 Year
  Sex: Female

DRUGS (1)
  1. LYNPARZA [Suspect]
     Active Substance: OLAPARIB
     Indication: Ovarian cancer
     Route: 048
     Dates: start: 20230712

REACTIONS (10)
  - Carcinoembryonic antigen increased [Unknown]
  - Blood magnesium decreased [Unknown]
  - Weight decreased [Unknown]
  - Muscle atrophy [Unknown]
  - Lipoatrophy [Unknown]
  - Ageusia [Unknown]
  - Rash [Unknown]
  - Asthenia [Unknown]
  - Fatigue [Unknown]
  - Decreased appetite [Unknown]

NARRATIVE: CASE EVENT DATE: 20240105
